FAERS Safety Report 4479160-2 (Version None)
Quarter: 2004Q3

REPORT INFORMATION
  Report Type: 
  Country: None (occurrence: None)
  Receive Date: 20040923
  Receipt Date: 20040601
  Transmission Date: 20050211
  Serious: No
  Sender: FDA-Public Use
  Company Number: USA040669000

PATIENT
  Age: 60 Year
  Sex: Male

DRUGS (3)
  1. FORTEO [Suspect]
     Dates: start: 20040101
  2. OXYCONTIN [Concomitant]
  3. PROCRIT [Concomitant]

REACTIONS (14)
  - ANXIETY [None]
  - ARTHRALGIA [None]
  - ASTHENIA [None]
  - BACK PAIN [None]
  - DIARRHOEA [None]
  - DIZZINESS [None]
  - DYSPNOEA [None]
  - FATIGUE [None]
  - HEADACHE [None]
  - HYPERHIDROSIS [None]
  - HYPERTENSION [None]
  - INSOMNIA [None]
  - MUSCLE CRAMP [None]
  - NECK PAIN [None]
